FAERS Safety Report 14252033 (Version 1)
Quarter: 2017Q4

REPORT INFORMATION
  Report Type: Report from Study
  Country: VE (occurrence: VE)
  Receive Date: 20171205
  Receipt Date: 20171205
  Transmission Date: 20180321
  Serious: Yes (Hospitalization, Other)
  Sender: FDA-Public Use
  Company Number: PHHY2017VE177602

PATIENT
  Sex: Female

DRUGS (2)
  1. AFINITOR [Suspect]
     Active Substance: EVEROLIMUS
     Indication: METASTASES TO BONE
     Dosage: 10 MG, QD
     Route: 048
     Dates: start: 201705
  2. AROMASIN [Concomitant]
     Active Substance: EXEMESTANE
     Indication: METASTASIS
     Route: 065

REACTIONS (4)
  - Disease recurrence [Unknown]
  - Thrombosis [Unknown]
  - Varicose vein [Unknown]
  - Discomfort [Not Recovered/Not Resolved]
